FAERS Safety Report 7630883-3 (Version None)
Quarter: 2011Q3

REPORT INFORMATION
  Report Type: 
  Country: None (occurrence: None)
  Receive Date: 20110724
  Receipt Date: 20110715
  Transmission Date: 20111222
  Serious: Yes (Other)
  Sender: FDA-Public Use
  Company Number: FR-ABBOTT-11P-056-0717446-00

PATIENT
  Sex: Female
  Weight: 63.5 kg

DRUGS (11)
  1. ACETAMINOPHEN AND TRAMADOL HCL [Concomitant]
     Indication: PRODUCT USED FOR UNKNOWN INDICATION
  2. HUMIRA [Suspect]
     Route: 058
     Dates: start: 20110420, end: 20110613
  3. LAMICTAL [Concomitant]
     Route: 048
     Dates: start: 20110401
  4. ALENDRONATE SODIUM [Concomitant]
     Indication: OSTEOPOROSIS
     Dates: start: 20040101
  5. PREDNISONE [Concomitant]
     Indication: ANKYLOSING SPONDYLITIS
     Route: 048
  6. LAMICTAL [Concomitant]
     Indication: EPILEPSY
     Dosage: 100 MG IN AM, 200 MG IN EVENING
     Route: 048
  7. JANUVIA [Concomitant]
     Indication: DIABETES MELLITUS
  8. NAPROSYN [Concomitant]
     Indication: ANKYLOSING SPONDYLITIS
  9. HUMIRA [Suspect]
     Indication: ANKYLOSING SPONDYLITIS
     Route: 058
     Dates: start: 20110328
  10. CACIT D3 [Concomitant]
     Indication: PRODUCT USED FOR UNKNOWN INDICATION
  11. CORTICOIDS (NOS) [Concomitant]
     Indication: PRODUCT USED FOR UNKNOWN INDICATION

REACTIONS (3)
  - DRUG INEFFECTIVE [None]
  - CONVULSION [None]
  - BLOOD CREATININE INCREASED [None]
